FAERS Safety Report 8742632 (Version 2)
Quarter: 2012Q4

REPORT INFORMATION
  Report Type: Report from Study
  Country: US (occurrence: US)
  Receive Date: 20120824
  Receipt Date: 20120830
  Transmission Date: 20130627
  Serious: Yes (Life-Threatening, Hospitalization)
  Sender: FDA-Public Use
  Company Number: US-JNJFOC-20120810244

PATIENT
  Age: 49 Year
  Sex: Male
  Weight: 63 kg

DRUGS (7)
  1. APAP [Suspect]
     Route: 065
  2. APAP [Suspect]
     Indication: PRODUCT USED FOR UNKNOWN INDICATION
     Route: 065
  3. TRAMADOL [Suspect]
     Indication: PRODUCT USED FOR UNKNOWN INDICATION
     Route: 065
  4. OXYCODONE AND ACETAMINOPHEN [Suspect]
     Indication: PRODUCT USED FOR UNKNOWN INDICATION
     Route: 065
  5. CYCLOBENZAPRINE [Suspect]
     Indication: PRODUCT USED FOR UNKNOWN INDICATION
     Route: 065
  6. HYDROCODONE, ACETAMINOPHEN [Suspect]
     Indication: PRODUCT USED FOR UNKNOWN INDICATION
     Route: 065
  7. ALCOHOL [Suspect]
     Indication: PRODUCT USED FOR UNKNOWN INDICATION
     Route: 065

REACTIONS (6)
  - Self injurious behaviour [Recovered/Resolved]
  - Overdose [Recovered/Resolved]
  - Coma [Recovered/Resolved]
  - Respiratory depression [Recovered/Resolved]
  - Hypotension [Recovered/Resolved]
  - Hypothermia [Recovered/Resolved]
